FAERS Safety Report 6371524-5 (Version None)
Quarter: 2009Q3

REPORT INFORMATION
  Report Type: 
  Country: None (occurrence: None)
  Receive Date: 20090923
  Receipt Date: 20080617
  Transmission Date: 20100115
  Serious: Yes (Other)
  Sender: FDA-Public Use
  Company Number: US-ASTRAZENECA-2007UW16066

PATIENT
  Age: 515 Month
  Sex: Male

DRUGS (4)
  1. SEROQUEL [Suspect]
     Indication: SLEEP DISORDER
     Route: 048
     Dates: start: 20020101
  2. SEROQUEL [Suspect]
     Dosage: 25-300 MG
     Route: 048
     Dates: start: 20030206
  3. AMBIEN [Concomitant]
     Indication: INSOMNIA
     Route: 048
     Dates: start: 20030108
  4. BUSPIRONE HCL [Concomitant]
     Dosage: 10 MG , 2 TABLETS THREE TIMES A DAY
     Route: 048
     Dates: start: 20030208

REACTIONS (1)
  - PANCREATITIS [None]
